FAERS Safety Report 11216006 (Version 1)
Quarter: 2015Q2

REPORT INFORMATION
  Report Type: Spontaneous
  Country: IT (occurrence: IT)
  Receive Date: 20150624
  Receipt Date: 20150624
  Transmission Date: 20150821
  Serious: Yes (Hospitalization)
  Sender: FDA-Public Use
  Company Number: IT-TEVA-571856ACC

PATIENT
  Age: 87 Year
  Sex: Male

DRUGS (5)
  1. PLAVIX 75 - COMPRESSE FILMRIVESTITE 75 MG [Concomitant]
     Indication: PRODUCT USED FOR UNKNOWN INDICATION
  2. GLICLAZIDE MOLTENI - 80 MG COMPRESSE [Suspect]
     Active Substance: GLICLAZIDE
     Indication: DIABETES MELLITUS
     Dosage: 160 MILLIGRAM DAILY; 160 MG DAILY
     Route: 048
     Dates: start: 20150601, end: 20150607
  3. METFORMIN [Suspect]
     Active Substance: METFORMIN HYDROCHLORIDE
     Indication: DIABETES MELLITUS
     Dosage: 1700 MILLIGRAM DAILY; 1700 MG DAILY
     Route: 048
     Dates: start: 20150101, end: 20150607
  4. METFORMIN [Suspect]
     Active Substance: METFORMIN HYDROCHLORIDE
     Indication: DIABETES MELLITUS
     Dosage: 500 MILLIGRAM DAILY; 500 MG DAILY
     Route: 048
     Dates: start: 20150101, end: 20150607
  5. LUCEN - 40 MG COMPRESSE GASTRORESISTENTI [Concomitant]
     Indication: PRODUCT USED FOR UNKNOWN INDICATION
     Dosage: GASTRO-RESISTANT TABLET

REACTIONS (2)
  - Hypoglycaemia [Recovering/Resolving]
  - Loss of consciousness [Recovering/Resolving]

NARRATIVE: CASE EVENT DATE: 20150607
